FAERS Safety Report 16878791 (Version 1)
Quarter: 2019Q4

REPORT INFORMATION
  Report Type: Report from Study
  Country: CA (occurrence: CA)
  Receive Date: 20191002
  Receipt Date: 20191002
  Transmission Date: 20200122
  Serious: Yes (Other)
  Sender: FDA-Public Use
  Company Number: CA-JNJFOC-20190922912

PATIENT
  Age: 77 Year
  Sex: Male
  Weight: 66 kg

DRUGS (1)
  1. STELARA [Suspect]
     Active Substance: USTEKINUMAB
     Indication: PSORIASIS
     Route: 058
     Dates: start: 20170727, end: 20190506

REACTIONS (1)
  - Leukaemia [Unknown]

NARRATIVE: CASE EVENT DATE: 20190827
